FAERS Safety Report 9719619 (Version 2)
Quarter: 2014Q1

REPORT INFORMATION
  Report Type: Spontaneous
  Country: US (occurrence: US)
  Receive Date: 20131128
  Receipt Date: 20140207
  Transmission Date: 20141002
  Serious: Yes (Other)
  Sender: FDA-Public Use
  Company Number: US-009507513-1311USA008841

PATIENT
  Age: 31 Year
  Sex: Female
  Weight: 150 kg

DRUGS (10)
  1. VICTRELIS [Suspect]
     Indication: HEPATITIS C
     Dosage: TAKE 4 CAPSULES BY MOUTH THREE TIMES A DAY EVERY 7 TO 9 HOURS WITH FOOD
     Route: 048
     Dates: start: 20131004
  2. PEGASYS [Suspect]
     Dosage: 180MCG/M
     Route: 058
  3. REBETOL [Suspect]
     Indication: HEPATITIS C
     Dosage: 1200 MG :600 MG AM AND 400 MG PM
     Route: 048
     Dates: start: 20131004
  4. REBETOL [Suspect]
     Dosage: 600 MG
     Route: 048
  5. OXYCODONE [Concomitant]
     Dosage: 5MG
     Route: 048
  6. FENTANYL [Concomitant]
     Dosage: 12MCG/HR EX
  7. PRILOSEC [Concomitant]
     Dosage: 20MG
     Route: 048
  8. PEPTO-BISMOL [Concomitant]
     Dosage: 262/15ML
     Route: 048
  9. TYLENOL 8 HOUR EXTENDED RELEASE [Concomitant]
     Dosage: 650MG
     Route: 048
  10. TUMS [Concomitant]
     Dosage: 500 MG
     Route: 048

REACTIONS (13)
  - Anaemia [Recovering/Resolving]
  - Palpitations [Unknown]
  - Fatigue [Unknown]
  - Anaemia [Unknown]
  - Asthenia [Unknown]
  - Tremor [Unknown]
  - Granulocytes abnormal [Not Recovered/Not Resolved]
  - Haematocrit abnormal [Not Recovered/Not Resolved]
  - Haemoglobin abnormal [Not Recovered/Not Resolved]
  - Lymphocyte count abnormal [Recovered/Resolved]
  - Lymphocyte percentage abnormal [Not Recovered/Not Resolved]
  - Mean cell volume abnormal [Not Recovered/Not Resolved]
  - Red blood cell morphology abnormal [Not Recovered/Not Resolved]
